FAERS Safety Report 16246416 (Version 1)
Quarter: 2019Q2

REPORT INFORMATION
  Report Type: Report from Study
  Country: None (occurrence: CO)
  Receive Date: 20190427
  Receipt Date: 20190427
  Transmission Date: 20190711
  Serious: Yes (Hospitalization)
  Sender: FDA-Public Use
  Company Number: CO-ABBVIE-19K-036-2759932-00

PATIENT
  Age: 34 Year
  Sex: Male

DRUGS (3)
  1. CLOZAPINE. [Concomitant]
     Active Substance: CLOZAPINE
     Indication: PRODUCT USED FOR UNKNOWN INDICATION
  2. HUMIRA [Suspect]
     Active Substance: ADALIMUMAB
     Indication: ANKYLOSING SPONDYLITIS
     Route: 058
     Dates: start: 20131113
  3. HUMIRA [Suspect]
     Active Substance: ADALIMUMAB
     Dosage: HUMIRA AC
     Route: 058
     Dates: end: 20190326

REACTIONS (7)
  - Feeling hot [Recovering/Resolving]
  - Psoriasis [Recovering/Resolving]
  - Anger [Recovering/Resolving]
  - Acne [Recovering/Resolving]
  - Bipolar disorder [Recovering/Resolving]
  - Affect lability [Recovering/Resolving]
  - Arthralgia [Recovering/Resolving]

NARRATIVE: CASE EVENT DATE: 201901
